FAERS Safety Report 8901876 (Version 1)
Quarter: 2012Q4

REPORT INFORMATION
  Report Type: Spontaneous
  Country: US (occurrence: None)
  Receive Date: 20121109
  Receipt Date: 20121109
  Transmission Date: 20130627
  Serious: Yes (Other)
  Sender: FDA-Public Use
  Company Number: None

PATIENT
  Age: 15 Year
  Sex: Male
  Weight: 78 kg

DRUGS (1)
  1. GUANFACINE [Suspect]
     Route: 048
     Dates: start: 20120620, end: 20120717

REACTIONS (2)
  - Diabetes mellitus inadequate control [None]
  - Blood glucose increased [None]
